FAERS Safety Report 6497106-2 (Version None)
Quarter: 2009Q4

REPORT INFORMATION
  Report Type: 
  Country: None (occurrence: None)
  Receive Date: 20091215
  Receipt Date: 20090325
  Transmission Date: 20100525
  Serious: No
  Sender: FDA-Public Use
  Company Number: A0773658A

PATIENT
  Age: 69 Year
  Sex: Male
  Weight: 81.8 kg

DRUGS (4)
  1. AVODART [Suspect]
     Indication: BENIGN PROSTATIC HYPERPLASIA
     Dosage: .5MG PER DAY
     Route: 048
     Dates: start: 20080512, end: 20081217
  2. LIPITOR [Concomitant]
     Dosage: 10MG ALTERNATE DAYS
     Route: 048
  3. FLOMAX [Concomitant]
     Dosage: .4U PER DAY
     Route: 048
  4. UROXATRAL [Concomitant]
     Dosage: 10MG PER DAY
     Route: 048

REACTIONS (5)
  - BREAST ENLARGEMENT [None]
  - BREAST INDURATION [None]
  - BREAST TENDERNESS [None]
  - DRUG INEFFECTIVE [None]
  - NIPPLE PAIN [None]
